FAERS Safety Report 10458794 (Version 2)
Quarter: 2014Q4

REPORT INFORMATION
  Report Type: Spontaneous
  Country: US (occurrence: US)
  Receive Date: 20140917
  Receipt Date: 20141104
  Transmission Date: 20150528
  Serious: Yes (Hospitalization)
  Sender: FDA-Public Use
  Company Number: US-SA-2014SA125877

PATIENT
  Age: 74 Year
  Sex: Female
  Weight: 70.76 kg

DRUGS (2)
  1. SOLOSTAR [Concomitant]
     Active Substance: DEVICE
     Indication: TYPE 2 DIABETES MELLITUS
  2. LANTUS SOLOSTAR [Suspect]
     Active Substance: INSULIN GLARGINE
     Indication: TYPE 2 DIABETES MELLITUS
     Dosage: 15-17 UNITS- DOSE DOSE:13 UNIT(S)
     Route: 065
     Dates: start: 2000

REACTIONS (2)
  - Hip fracture [Unknown]
  - Fall [Unknown]
